FAERS Safety Report 23339993 (Version 3)
Quarter: 2025Q1

REPORT INFORMATION
  Report Type: Spontaneous
  Country: US (occurrence: US)
  Receive Date: 20231226
  Receipt Date: 20250226
  Transmission Date: 20250409
  Serious: No
  Sender: AMGEN
  Company Number: US-AMGEN-USASP2023229976

PATIENT
  Age: 55 Year
  Sex: Male

DRUGS (4)
  1. OTEZLA [Suspect]
     Active Substance: APREMILAST
     Indication: Psoriasis
     Dosage: 30 MILLIGRAM, BID, APPROXIMATELY 12HOURS APART
     Route: 048
     Dates: start: 20231117
  2. OTEZLA [Suspect]
     Active Substance: APREMILAST
     Indication: Psoriatic arthropathy
  3. ENTRESTO [Concomitant]
     Active Substance: SACUBITRIL\VALSARTAN
  4. RINVOQ [Concomitant]
     Active Substance: UPADACITINIB

REACTIONS (7)
  - Skin irritation [Unknown]
  - Product dose omission issue [Unknown]
  - General symptom [Unknown]
  - Loss of personal independence in daily activities [Unknown]
  - Pain [Unknown]
  - Arthralgia [Unknown]
  - Rash [Unknown]

NARRATIVE: CASE EVENT DATE: 20231222
